FAERS Safety Report 8801627 (Version 3)
Quarter: 2013Q1

REPORT INFORMATION
  Report Type: Spontaneous
  Country: US (occurrence: US)
  Receive Date: 20120921
  Receipt Date: 20130124
  Transmission Date: 20140127
  Serious: Yes (Hospitalization)
  Sender: FDA-Public Use
  Company Number: US-BAYER-2012-098311

PATIENT
  Age: 38 Year
  Sex: Female
  Weight: 65.6 kg

DRUGS (7)
  1. GIANVI [Suspect]
     Indication: CONTRACEPTION
     Dosage: UNK
     Dates: start: 201101, end: 20111215
  2. YASMIN [Suspect]
     Indication: CONTRACEPTION
     Dosage: UNK
     Dates: start: 201009, end: 201012
  3. Z-PAK [Concomitant]
     Dosage: UNK
     Route: 048
     Dates: start: 201110
  4. NITROFURANTOIN [Concomitant]
     Dosage: 100 MG, UNK
     Dates: start: 20111119
  5. AZITHROMYCIN [Concomitant]
     Dosage: 250 MG, UNK
     Dates: start: 20111128
  6. ANTIBIOTICS [Concomitant]
     Dosage: UNK
     Dates: start: 2002
  7. JUICE PLUS [Concomitant]
     Dosage: UNK
     Dates: start: 2009

REACTIONS (11)
  - Pulmonary embolism [None]
  - Injury [None]
  - Emotional distress [None]
  - Depression [None]
  - Fear of death [None]
  - Nervousness [None]
  - Chest pain [None]
  - Angina pectoris [None]
  - Haemoptysis [None]
  - Night sweats [None]
  - Asthenia [None]
